FAERS Safety Report 4504515-7 (Version None)
Quarter: 2004Q4

REPORT INFORMATION
  Report Type: 
  Country: None (occurrence: None)
  Receive Date: 20041116
  Receipt Date: 20040809
  Transmission Date: 20050328
  Serious: No
  Sender: FDA-Public Use
  Company Number: 8640

PATIENT
  Sex: Female

DRUGS (3)
  1. AMIODARONE [Suspect]
     Indication: TACHYCARDIA FOETAL
     Dosage: 400 MG
  2. DIGOXIN [Concomitant]
  3. FLECAINIDE ACETATE [Concomitant]

REACTIONS (2)
  - DRUG EXPOSURE DURING PREGNANCY [None]
  - PREMATURE BABY [None]
